FAERS Safety Report 21824302 (Version 1)
Quarter: 2023Q1

REPORT INFORMATION
  Report Type: Report from Study
  Country: CA (occurrence: CA)
  Receive Date: 20230105
  Receipt Date: 20230105
  Transmission Date: 20230418
  Serious: Yes (Death)
  Sender: FDA-Public Use
  Company Number: CA-ABBVIE-4258692

PATIENT
  Age: 67 Year
  Sex: Male

DRUGS (1)
  1. LUPRON DEPOT [Suspect]
     Active Substance: LEUPROLIDE ACETATE
     Indication: Prostate cancer
     Dosage: DISCONTINUED IN 2022
     Route: 030
     Dates: start: 20220421

REACTIONS (1)
  - Death [Fatal]

NARRATIVE: CASE EVENT DATE: 20220508
